FAERS Safety Report 8893558 (Version 1)
Quarter: 2012Q4

REPORT INFORMATION
  Report Type: Report from Study
  Country: CA (occurrence: CA)
  Receive Date: 20121107
  Receipt Date: 20121107
  Transmission Date: 20130627
  Serious: Yes (Hospitalization)
  Sender: FDA-Public Use
  Company Number: CA-JNJFOC-20121013922

PATIENT
  Age: 63 Year
  Sex: Male
  Weight: 72 kg

DRUGS (1)
  1. REMICADE [Suspect]
     Indication: PRODUCT USED FOR UNKNOWN INDICATION
     Route: 042
     Dates: start: 20120509

REACTIONS (6)
  - Anaemia [Unknown]
  - Frequent bowel movements [Unknown]
  - Weight decreased [Unknown]
  - Diarrhoea [Unknown]
  - Condition aggravated [Unknown]
  - Pulmonary embolism [Recovering/Resolving]
